FAERS Safety Report 5600089-8 (Version None)
Quarter: 2008Q1

REPORT INFORMATION
  Report Type: 
  Country: None (occurrence: None)
  Receive Date: 20080123
  Receipt Date: 20080115
  Transmission Date: 20080703
  Serious: Yes (Disabling)
  Sender: FDA-Public Use
  Company Number: A0696379A

PATIENT
  Age: 51 Year
  Sex: Female
  Weight: 61.4 kg

DRUGS (3)
  1. FLOVENT [Suspect]
     Indication: COUGH
     Route: 055
  2. PROVENTIL-HFA [Suspect]
     Indication: COUGH
     Route: 055
     Dates: start: 20071115, end: 20071129
  3. ALBUTEROL [Concomitant]

REACTIONS (3)
  - ASTHMA [None]
  - COUGH [None]
  - DYSPNOEA [None]
